FAERS Safety Report 16663932 (Version 4)
Quarter: 2019Q4

REPORT INFORMATION
  Report Type: Spontaneous
  Country: JP (occurrence: JP)
  Receive Date: 20190802
  Receipt Date: 20191004
  Transmission Date: 20200122
  Serious: Yes (Other)
  Sender: FDA-Public Use
  Company Number: JP-GLAXOSMITHKLINE-JP2019JPN136987

PATIENT
  Age: 71 Year
  Sex: Male

DRUGS (7)
  1. SULTANOL [Suspect]
     Active Substance: ALBUTEROL SULFATE
     Indication: ASTHMA
     Dosage: UNK
     Route: 055
  2. CANDESARTAN CILEXETIL. [Concomitant]
     Active Substance: CANDESARTAN CILEXETIL
     Indication: HYPERTENSION
     Dosage: UNK
  3. EPADEL S [Concomitant]
     Active Substance: ICOSAPENT ETHYL
     Indication: DYSLIPIDAEMIA
     Dosage: UNK
  4. ATENOLOL. [Concomitant]
     Active Substance: ATENOLOL
     Indication: HYPERTENSION
     Dosage: UNK
  5. ENALAPRIL MALEATE TABLETS [Concomitant]
     Indication: HYPERTENSION
     Dosage: UNK
  6. NIFEDIPINE. [Concomitant]
     Active Substance: NIFEDIPINE
     Indication: HYPERTENSION
     Dosage: UNK
  7. LOXOPROFEN NA TAPE [Concomitant]
     Dosage: UNK

REACTIONS (4)
  - Scar [Not Recovered/Not Resolved]
  - Burns second degree [Recovered/Resolved]
  - Thermal burn [Recovered/Resolved with Sequelae]
  - Burns third degree [Recovered/Resolved with Sequelae]

NARRATIVE: CASE EVENT DATE: 2019
